FAERS Safety Report 8344370 (Version 2)
Quarter: 2013Q3

REPORT INFORMATION
  Report Type: Report from Study
  Country: MX (occurrence: MX)
  Receive Date: 20120119
  Receipt Date: 20130705
  Transmission Date: 20140515
  Serious: Yes (Other)
  Sender: FDA-Public Use
  Company Number: PHHY2012MX003320

PATIENT
  Age: 82 Year
  Sex: Male

DRUGS (1)
  1. DIOVAN [Suspect]
     Indication: HYPERTENSION
     Dosage: 1 DF, (320 MG DAILY)
     Route: 048
     Dates: start: 2008

REACTIONS (3)
  - Tooth infection [Recovered/Resolved with Sequelae]
  - Dental caries [Recovered/Resolved with Sequelae]
  - Toothache [Not Recovered/Not Resolved]
